FAERS Safety Report 8586677 (Version 2)
Quarter: 2013Q4

REPORT INFORMATION
  Report Type: Report from Study
  Country: AR (occurrence: AR)
  Receive Date: 20120530
  Receipt Date: 20131219
  Transmission Date: 20140711
  Serious: Yes (Other)
  Sender: FDA-Public Use
  Company Number: AR-ROCHE-1070949

PATIENT
  Age: 38 Year
  Sex: Male

DRUGS (2)
  1. RANIBIZUMAB [Suspect]
     Indication: VISUAL IMPAIRMENT
     Dosage: 3 AMPULES
     Route: 050
     Dates: start: 2012
  2. RANIBIZUMAB [Suspect]
     Indication: DIABETIC RETINAL OEDEMA

REACTIONS (8)
  - Blood glucose increased [Unknown]
  - Depressed mood [Recovering/Resolving]
  - Eye swelling [Recovering/Resolving]
  - Visual impairment [Recovering/Resolving]
  - Anxiety [Recovering/Resolving]
  - Renal failure [Not Recovered/Not Resolved]
  - Blindness [Not Recovered/Not Resolved]
  - Eye pain [Not Recovered/Not Resolved]
